FAERS Safety Report 10897302 (Version 2)
Quarter: 2015Q2

REPORT INFORMATION
  Report Type: Spontaneous
  Country: US (occurrence: US)
  Receive Date: 20150309
  Receipt Date: 20150406
  Transmission Date: 20150821
  Serious: No
  Sender: FDA-Public Use
  Company Number: US-PFIZER INC-2015079692

PATIENT
  Age: 57 Year
  Sex: Female
  Weight: 82 kg

DRUGS (4)
  1. GABAPENTIN. [Suspect]
     Active Substance: GABAPENTIN
     Indication: DIABETIC NEUROPATHY
     Dosage: 300 MG, 2X/DAY (300 MG IN THE MORNING AND 300 MG AT NIGHT )
     Route: 048
     Dates: start: 20150212
  2. GABAPENTIN. [Suspect]
     Active Substance: GABAPENTIN
     Indication: GINGIVAL PAIN
     Dosage: 900 MG, (300 MG IN THE MORNING AND 600 MG AT NIGHT )
     Route: 048
     Dates: start: 20150226
  3. GABAPENTIN. [Suspect]
     Active Substance: GABAPENTIN
     Indication: SENSITIVITY OF TEETH
     Dosage: 600 MG, 2X/DAY
     Route: 048
     Dates: end: 20150302
  4. GABAPENTIN. [Suspect]
     Active Substance: GABAPENTIN
     Dosage: 600 UNK, UNK

REACTIONS (5)
  - Anxiety [Recovered/Resolved]
  - Product use issue [Unknown]
  - Asthenia [Recovering/Resolving]
  - Panic reaction [Recovering/Resolving]
  - Dizziness [Recovered/Resolved]

NARRATIVE: CASE EVENT DATE: 20150226
